FAERS Safety Report 5780617-2 (Version None)
Quarter: 2008Q2

REPORT INFORMATION
  Report Type: 
  Country: None (occurrence: None)
  Receive Date: 20080620
  Receipt Date: 20080612
  Transmission Date: 20081010
  Serious: Yes (Other)
  Sender: FDA-Public Use
  Company Number: US-ELI_LILLY_AND_COMPANY-US200806003274

PATIENT
  Sex: Female
  Weight: 91.61 kg

DRUGS (17)
  1. BYETTA [Suspect]
     Indication: TYPE 2 DIABETES MELLITUS
     Dosage: 5 UG, UNK
     Route: 058
     Dates: start: 20050101, end: 20050101
  2. BYETTA [Suspect]
     Dosage: 10 UG, UNK
     Route: 058
     Dates: start: 20050101, end: 20060901
  3. BYETTA [Suspect]
     Dosage: 5 UG, UNK
     Route: 058
     Dates: start: 20060901, end: 20080301
  4. BYETTA [Suspect]
     Dosage: 10 UG, 2/D
     Route: 058
     Dates: start: 20080301
  5. ADVAIR DISKUS 100/50 [Concomitant]
     Indication: ASTHMA
     Dosage: UNK, DAILY (1/D)
  6. TRIAMTERENE [Concomitant]
     Indication: BLOOD PRESSURE
     Dosage: UNK MG, DAILY (1/D)
  7. PRILOSEC [Concomitant]
     Indication: GASTROOESOPHAGEAL REFLUX DISEASE
     Dosage: 20 MG, DAILY (1/D)
  8. METFORMIN [Concomitant]
     Indication: TYPE 2 DIABETES MELLITUS
     Dosage: 500 MG, 2/D
  9. GLYBURIDE AND METFORMIN HCL [Concomitant]
     Indication: TYPE 2 DIABETES MELLITUS
     Dosage: UNK MG, 2/D
  10. SERTRALINE HYDROCHLORIDE [Concomitant]
     Indication: DEPRESSION
     Dosage: 50 MG, DAILY (1/D)
     Dates: start: 20000101
  11. ENALAPRIL MALEATE [Concomitant]
     Indication: BLOOD PRESSURE
     Dosage: 5 MG, 2/D
  12. VYTORIN [Concomitant]
     Indication: BLOOD CHOLESTEROL
     Dosage: UNK MG, DAILY (1/D)
  13. TRICOR [Concomitant]
     Indication: BLOOD TRIGLYCERIDES
     Dosage: 145 MG, DAILY (1/D)
  14. ARIMIDEX [Concomitant]
     Indication: BREAST CANCER
     Dosage: 1 MG, DAILY (1/D)
  15. ASPIRIN [Concomitant]
     Dosage: 81 MG, DAILY (1/D)
  16. ACTONEL [Concomitant]
     Indication: OSTEOPOROSIS
     Dosage: 35 MG, WEEKLY (1/W)
  17. ULTRAM [Concomitant]
     Indication: PAIN
     Dosage: UNK, AS NEEDED

REACTIONS (3)
  - EARLY SATIETY [None]
  - METASTATIC UTERINE CANCER [None]
  - VAGINAL HAEMORRHAGE [None]
